FAERS Safety Report 9788628 (Version 1)
Quarter: 2013Q4

REPORT INFORMATION
  Report Type: Spontaneous
  Country: TR (occurrence: TR)
  Receive Date: 20131230
  Receipt Date: 20131230
  Transmission Date: 20140711
  Serious: Yes (Hospitalization)
  Sender: FDA-Public Use
  Company Number: PHHY2013TR152998

PATIENT
  Age: 23 Year
  Sex: Male
  Weight: 68 kg

DRUGS (1)
  1. CARBAMAZEPINE [Suspect]

REACTIONS (4)
  - Suicidal ideation [Unknown]
  - Thrombocytopenia [Recovered/Resolved]
  - Nausea [Unknown]
  - Toxicity to various agents [Unknown]
